FAERS Safety Report 8282973-2 (Version None)
Quarter: 2012Q2

REPORT INFORMATION
  Report Type: 
  Country: None (occurrence: None)
  Receive Date: 20120413
  Receipt Date: 20120330
  Transmission Date: 20120825
  Serious: Yes (Hospitalization)
  Sender: FDA-Public Use
  Company Number: DK-ROCHE-1049692

PATIENT
  Sex: Male

DRUGS (14)
  1. MABTHERA [Suspect]
     Route: 042
     Dates: start: 20120123
  2. WARFARIN SODIUM [Suspect]
     Indication: DEEP VEIN THROMBOSIS
     Route: 048
     Dates: start: 20111205
  3. MABTHERA [Suspect]
     Indication: MALIGNANT LYMPHOID NEOPLASM
     Route: 042
     Dates: start: 20110822
  4. MABTHERA [Suspect]
     Route: 042
     Dates: start: 20110905
  5. DOXORUBICIN HYDROCHLORIDE [Suspect]
     Route: 042
     Dates: start: 20110905
  6. PREDNISONE [Suspect]
     Indication: MALIGNANT LYMPHOID NEOPLASM
     Route: 048
     Dates: start: 20110822
  7. PREDNISONE [Suspect]
     Route: 048
     Dates: start: 20110905
  8. CYCLOPHOSPHAMIDE [Suspect]
     Route: 042
     Dates: start: 20110905
  9. VINCRISTINE [Suspect]
     Indication: MALIGNANT LYMPHOID NEOPLASM
     Route: 042
     Dates: start: 20110822
  10. FILGRASTIM [Suspect]
     Indication: MALIGNANT LYMPHOID NEOPLASM
     Route: 042
     Dates: start: 20110823
  11. VINCRISTINE [Suspect]
     Route: 042
     Dates: start: 20110905
  12. CYCLOPHOSPHAMIDE [Suspect]
     Indication: MALIGNANT LYMPHOID NEOPLASM
     Route: 042
     Dates: start: 20110822
  13. DOXORUBICIN HYDROCHLORIDE [Suspect]
     Indication: MALIGNANT LYMPHOID NEOPLASM
     Route: 042
     Dates: start: 20110822
  14. FILGRASTIM [Suspect]
     Route: 042
     Dates: start: 20110906

REACTIONS (1)
  - GASTRIC ULCER HAEMORRHAGE [None]
